FAERS Safety Report 19125257 (Version 1)
Quarter: 2021Q2

REPORT INFORMATION
  Report Type: Spontaneous
  Country: US (occurrence: US)
  Receive Date: 20210412
  Receipt Date: 20210412
  Transmission Date: 20210717
  Serious: No
  Sender: FDA-Public Use
  Company Number: US-PFIZER INC-2021353527

PATIENT
  Age: 65 Year
  Sex: Male
  Weight: 130 kg

DRUGS (1)
  1. XELJANZ XR [Suspect]
     Active Substance: TOFACITINIB CITRATE
     Indication: RHEUMATOID ARTHRITIS
     Dosage: 11 MG, DAILY
     Route: 048
     Dates: start: 20210105

REACTIONS (3)
  - Condition aggravated [Unknown]
  - Finger deformity [Unknown]
  - Fatigue [Unknown]

NARRATIVE: CASE EVENT DATE: 202103
